FAERS Safety Report 24590973 (Version 2)
Quarter: 2024Q4

REPORT INFORMATION
  Report Type: Spontaneous
  Country: US (occurrence: US)
  Receive Date: 20241107
  Receipt Date: 20241125
  Transmission Date: 20250115
  Serious: Yes (Other)
  Sender: PFIZER
  Company Number: US-PFIZER INC-202400295046

PATIENT
  Age: 70 Year
  Sex: Female

DRUGS (2)
  1. BRAFTOVI [Suspect]
     Active Substance: ENCORAFENIB
     Dosage: TAKE 6 CAPSULES (450 MG) BY MOUTH DAILY
     Route: 048
  2. MEKTOVI [Suspect]
     Active Substance: BINIMETINIB
     Dosage: TAKE 3 TABLETS (45 MG) BY MOUTH EVERY 12 (TWELVE) HOURS
     Route: 048

REACTIONS (3)
  - Fall [Unknown]
  - Femur fracture [Unknown]
  - Product dose omission in error [Unknown]
